FAERS Safety Report 7594293-X (Version None)
Quarter: 2011Q3

REPORT INFORMATION
  Report Type: 
  Country: None (occurrence: None)
  Receive Date: 20110706
  Receipt Date: 20110616
  Transmission Date: 20111222
  Serious: Yes (Other)
  Sender: FDA-Public Use
  Company Number: BR-ASTRAZENECA-2011SE37100

PATIENT
  Age: 44 Year
  Sex: Female
  Weight: 59 kg

DRUGS (1)
  1. CRESTOR [Suspect]
     Indication: HYPERCHOLESTEROLAEMIA
     Route: 048
     Dates: start: 20110601, end: 20110606

REACTIONS (6)
  - PRURITUS GENERALISED [None]
  - THROAT IRRITATION [None]
  - GENERALISED OEDEMA [None]
  - SKIN PLAQUE [None]
  - DYSPNOEA [None]
  - HEADACHE [None]
